FAERS Safety Report 8616054-2 (Version None)
Quarter: 2012Q3

REPORT INFORMATION
  Report Type: 
  Country: None (occurrence: None)
  Receive Date: 20120823
  Receipt Date: 20120815
  Transmission Date: 20120928
  Serious: Yes (Hospitalization, Disabling, Other)
  Sender: FDA-Public Use
  Company Number: US-009507513-1108USA02821

PATIENT

DRUGS (5)
  1. FOSAMAX [Suspect]
     Indication: OSTEOPOROSIS
     Dosage: 70 MG, QW
     Route: 048
     Dates: start: 20001201, end: 20080301
  2. MK-9278 [Concomitant]
     Dosage: 1 MG, QD
     Route: 048
     Dates: start: 20000101
  3. FOSAMAX [Suspect]
     Indication: OSTEOPENIA
  4. FOSAMAX PLUS D [Suspect]
     Indication: OSTEOPENIA
  5. FOSAMAX PLUS D [Suspect]
     Indication: OSTEOPOROSIS
     Dosage: UNK MG, UNK
     Route: 048
     Dates: start: 20080301, end: 20100201

REACTIONS (62)
  - FIBROMYALGIA [None]
  - HYPERCALCAEMIA [None]
  - CONTUSION [None]
  - TYPE 2 DIABETES MELLITUS [None]
  - URINARY INCONTINENCE [None]
  - BLADDER DISORDER [None]
  - MEMORY IMPAIRMENT [None]
  - BREAST MASS [None]
  - CEREBRAL ISCHAEMIA [None]
  - MITRAL VALVE PROLAPSE [None]
  - HYPERLIPIDAEMIA [None]
  - GLAUCOMA [None]
  - LIGAMENT SPRAIN [None]
  - BREAST DISORDER [None]
  - DERMATITIS CONTACT [None]
  - CATARACT [None]
  - DEPRESSION [None]
  - HYPERCHOLESTEROLAEMIA [None]
  - BURSITIS [None]
  - HAEMORRHAGIC ANAEMIA [None]
  - MENTAL STATUS CHANGES [None]
  - FALL [None]
  - HYPOKALAEMIA [None]
  - GASTROOESOPHAGEAL REFLUX DISEASE [None]
  - IODINE ALLERGY [None]
  - DRUG HYPERSENSITIVITY [None]
  - CAPSULAR CONTRACTURE ASSOCIATED WITH BREAST IMPLANT [None]
  - OVARIAN DISORDER [None]
  - COLONIC POLYP [None]
  - CHEST PAIN [None]
  - CHEST DISCOMFORT [None]
  - DYSURIA [None]
  - FEMUR FRACTURE [None]
  - INSOMNIA [None]
  - MYOSITIS OSSIFICANS [None]
  - HAEMORRHOIDS [None]
  - PHYSICAL ABUSE [None]
  - ASTHENIA [None]
  - DYSPEPSIA [None]
  - HEADACHE [None]
  - PSYCHOLOGICAL ABUSE [None]
  - MALAISE [None]
  - STRESS FRACTURE [None]
  - ESSENTIAL HYPERTENSION [None]
  - URINARY TRACT INFECTION [None]
  - CAROTID ARTERY STENOSIS [None]
  - GALLBLADDER DISORDER [None]
  - HEARING IMPAIRED [None]
  - SYNCOPE [None]
  - MULTIPLE FRACTURES [None]
  - DYSPNOEA EXERTIONAL [None]
  - LEFT VENTRICULAR DYSFUNCTION [None]
  - DEMENTIA [None]
  - OSTEOPOROSIS [None]
  - LOW TURNOVER OSTEOPATHY [None]
  - MUSCLE SPASMS [None]
  - OSTEOARTHRITIS [None]
  - UTERINE DISORDER [None]
  - CALCULUS URINARY [None]
  - EYE DISORDER [None]
  - RESTLESS LEGS SYNDROME [None]
  - FATIGUE [None]
